FAERS Safety Report 8478719-5 (Version None)
Quarter: 2012Q2

REPORT INFORMATION
  Report Type: 
  Country: None (occurrence: None)
  Receive Date: 20120629
  Receipt Date: 20120628
  Transmission Date: 20120825
  Serious: Yes (Other)
  Sender: FDA-Public Use
  Company Number: US-ROCHE-1082658

PATIENT
  Sex: Male

DRUGS (4)
  1. MESTINON [Concomitant]
     Indication: MYASTHENIA GRAVIS
     Dosage: 60MG IN AM, 90 MG AT 1100, 90 MG AT 1400 AND 180 MG AT 2200.
     Route: 048
  2. PREDNISONE TAB [Concomitant]
     Indication: MYASTHENIA GRAVIS
     Route: 048
  3. QUINAPRIL [Concomitant]
     Indication: HYPERTENSION
     Route: 048
  4. CELLCEPT [Suspect]
     Indication: MYASTHENIA GRAVIS
     Route: 048

REACTIONS (2)
  - PROSTATE CANCER [None]
  - DIARRHOEA [None]
